FAERS Safety Report 4934601-9 (Version None)
Quarter: 2006Q1

REPORT INFORMATION
  Report Type: 
  Country: None (occurrence: None)
  Receive Date: 20060307
  Receipt Date: 20051011
  Transmission Date: 20060701
  Serious: Yes (Hospitalization)
  Sender: FDA-Public Use
  Company Number: US-MERCK-0510USA06616

PATIENT
  Age: 69 Year
  Sex: Male

DRUGS (1)
  1. VIOXX [Suspect]
     Indication: OSTEOARTHRITIS
     Route: 065
     Dates: start: 20010323, end: 20040724

REACTIONS (13)
  - ABDOMINAL PAIN UPPER [None]
  - ANXIETY [None]
  - CARDIOMYOPATHY [None]
  - CEREBROVASCULAR ACCIDENT [None]
  - CONVULSION [None]
  - DIZZINESS [None]
  - HYPERTENSION [None]
  - LABILE HYPERTENSION [None]
  - LETHARGY [None]
  - OBESITY [None]
  - SLEEP DISORDER [None]
  - TRIGGER FINGER [None]
  - VENTRICULAR TACHYCARDIA [None]
